FAERS Safety Report 9422811 (Version 2)
Quarter: 2013Q3

REPORT INFORMATION
  Report Type: Spontaneous
  Country: US (occurrence: None)
  Receive Date: 20130724
  Receipt Date: 20130809
  Transmission Date: 20140515
  Serious: Yes (Other)
  Sender: FDA-Public Use
  Company Number: 1803479

PATIENT
  Age: 45 Year
  Sex: Female

DRUGS (2)
  1. 2% LIDOCAINE HCL [Suspect]
     Indication: PRODUCT USED FOR UNKNOWN INDICATION
     Dates: start: 20130529
  2. (OTHER DERMATOLOGICAL PREPARATIONS) [Suspect]
     Dates: start: 20130529

REACTIONS (2)
  - Granuloma skin [None]
  - Pain [None]
